FAERS Safety Report 23452939 (Version 1)
Quarter: 2024Q1

REPORT INFORMATION
  Report Type: Spontaneous
  Country: US (occurrence: US)
  Receive Date: 20240129
  Receipt Date: 20240129
  Transmission Date: 20240410
  Serious: No
  Sender: FDA-Public Use
  Company Number: US-PFIZER INC-202400026251

PATIENT
  Age: 15 Year
  Sex: Female

DRUGS (7)
  1. XELJANZ [Suspect]
     Active Substance: TOFACITINIB CITRATE
     Dosage: 5 MG, 2X/DAY
     Route: 048
  2. FAMOTIDINE [Concomitant]
     Active Substance: FAMOTIDINE
  3. PREDNISONE [Concomitant]
     Active Substance: PREDNISONE
  4. ACTEMRA [Concomitant]
     Active Substance: TOCILIZUMAB
  5. ALEVE [Concomitant]
     Active Substance: NAPROXEN SODIUM
  6. ILARIS [Concomitant]
     Active Substance: CANAKINUMAB
  7. METHOTREXATE [Concomitant]
     Active Substance: METHOTREXATE

REACTIONS (1)
  - Drug ineffective [Unknown]
